FAERS Safety Report 14377858 (Version 1)
Quarter: 2018Q1

REPORT INFORMATION
  Report Type: Spontaneous
  Country: US (occurrence: US)
  Receive Date: 20180111
  Receipt Date: 20180111
  Transmission Date: 20180509
  Serious: No
  Sender: FDA-Public Use
  Company Number: US-SUNOVION-2017SUN005540

PATIENT
  Sex: Female
  Weight: 112.2 kg

DRUGS (2)
  1. LATUDA [Suspect]
     Active Substance: LURASIDONE HYDROCHLORIDE
     Indication: MOOD SWINGS
     Dosage: 80 MG, UNK
     Route: 048
     Dates: start: 2016
  2. CELEXA [Concomitant]
     Active Substance: CITALOPRAM HYDROBROMIDE
     Dosage: 40 MG, QD
     Route: 048

REACTIONS (2)
  - Tachyphrenia [Not Recovered/Not Resolved]
  - Hallucination [Not Recovered/Not Resolved]
